FAERS Safety Report 5109183-1 (Version None)
Quarter: 2006Q3

REPORT INFORMATION
  Report Type: 
  Country: None (occurrence: None)
  Receive Date: 20060920
  Receipt Date: 20060704
  Transmission Date: 20061208
  Serious: Yes (Hospitalization)
  Sender: FDA-Public Use
  Company Number: 2006AP03041

PATIENT
  Age: 21686 Day
  Sex: Female
  Weight: 42.9 kg

DRUGS (7)
  1. IRESSA [Suspect]
     Indication: NON-SMALL CELL LUNG CANCER
     Route: 048
     Dates: start: 20060328, end: 20060426
  2. GEMZAR [Concomitant]
     Route: 042
     Dates: start: 20060116, end: 20060116
  3. GEMZAR [Concomitant]
     Route: 042
     Dates: start: 20060307, end: 20060307
  4. METHYLON [Concomitant]
     Indication: ASTHMA
     Route: 048
     Dates: start: 20040504
  5. THEOLAN [Concomitant]
     Indication: ASTHMA
     Route: 048
     Dates: start: 20040804
  6. TRITACE [Concomitant]
     Indication: HYPERTENSION
     Route: 048
     Dates: start: 20040826
  7. MADIPINE [Concomitant]
     Indication: HYPERTENSION
     Route: 048
     Dates: start: 20041230

REACTIONS (1)
  - HAEMOPTYSIS [None]
